FAERS Safety Report 5994589-9 (Version None)
Quarter: 2008Q4

REPORT INFORMATION
  Report Type: 
  Country: None (occurrence: None)
  Receive Date: 20081212
  Receipt Date: 20080908
  Transmission Date: 20090506
  Serious: No
  Sender: FDA-Public Use
  Company Number: US-ABBOTT-08P-163-0475431-00

PATIENT
  Age: 51 Year
  Sex: Male

DRUGS (4)
  1. HUMIRA [Suspect]
     Indication: CROHN'S DISEASE
     Route: 058
     Dates: start: 20071201
  2. HUMIRA [Suspect]
     Route: 058
     Dates: start: 20071101, end: 20071101
  3. HUMIRA [Suspect]
     Route: 058
     Dates: start: 20071101, end: 20071101
  4. MODURETIC 5-50 [Concomitant]
     Indication: BLOOD PRESSURE
     Dosage: 7.5/12.5 MG
     Route: 048

REACTIONS (2)
  - ACCIDENTAL EXPOSURE [None]
  - PROCEDURAL COMPLICATION [None]
